FAERS Safety Report 12580814 (Version 1)
Quarter: 2016Q3

REPORT INFORMATION
  Report Type: Spontaneous
  Country: US (occurrence: US)
  Receive Date: 20160721
  Receipt Date: 20160721
  Transmission Date: 20161109
  Serious: No
  Sender: FDA-Public Use
  Company Number: US-TAKEDA-2016TUS012347

PATIENT
  Age: 61 Year
  Sex: Female
  Weight: 47.62 kg

DRUGS (2)
  1. DEXILANT [Suspect]
     Active Substance: DEXLANSOPRAZOLE
     Indication: GASTROOESOPHAGEAL REFLUX DISEASE
  2. DEXILANT [Suspect]
     Active Substance: DEXLANSOPRAZOLE
     Indication: NAUSEA
     Dosage: 60 MG, BID
     Route: 048
     Dates: start: 201606

REACTIONS (1)
  - Neuralgia [Recovering/Resolving]

NARRATIVE: CASE EVENT DATE: 20160707
